FAERS Safety Report 7110904-7 (Version None)
Quarter: 2010Q4

REPORT INFORMATION
  Report Type: 
  Country: None (occurrence: None)
  Receive Date: 20101118
  Receipt Date: 20101108
  Transmission Date: 20110411
  Serious: Yes (Other)
  Sender: FDA-Public Use
  Company Number: US-AMGEN-USASP2010003744

PATIENT

DRUGS (8)
  1. PROCRIT [Suspect]
     Indication: ANAEMIA
     Dosage: UNK
  2. FUROSEMIDE [Concomitant]
     Indication: DIURETIC THERAPY
     Dosage: 10 MG, Q12H
     Route: 048
     Dates: start: 19950101
  3. LEVOXYL [Concomitant]
     Indication: HYPOTHYROIDISM
     Dosage: 75 MG, UNK
     Route: 048
  4. LEVOXYL [Concomitant]
     Dosage: 50 MG, QWK
     Dates: start: 20070101
  5. LISINOPRIL [Concomitant]
     Indication: RENAL DISORDER
     Dosage: 2.5 MG, QD
     Route: 048
     Dates: start: 19950101
  6. ALLOPURINOL [Concomitant]
     Indication: GOUT
     Dosage: 100 MG, QD
     Route: 048
     Dates: start: 20080101
  7. IRON [Concomitant]
     Dosage: 325 MG, Q12H
     Route: 048
     Dates: start: 20000101
  8. LANTUS [Concomitant]
     Indication: DIABETES MELLITUS
     Dosage: 14 IU, QD
     Route: 058
     Dates: start: 20070101

REACTIONS (3)
  - HEADACHE [None]
  - INCORRECT PRODUCT STORAGE [None]
  - VISION BLURRED [None]
